FAERS Safety Report 16763146 (Version 3)
Quarter: 2019Q4

REPORT INFORMATION
  Report Type: Report from Study
  Country: JP (occurrence: JP)
  Receive Date: 20190902
  Receipt Date: 20191111
  Transmission Date: 20200122
  Serious: Yes (Other)
  Sender: FDA-Public Use
  Company Number: JP-BEH-2019106196

PATIENT
  Age: 71 Year
  Sex: Male
  Weight: 58 kg

DRUGS (10)
  1. BERIPLEX P/N [Suspect]
     Active Substance: COAGULATION FACTOR IX HUMAN\COAGULATION FACTOR VII HUMAN\COAGULATION FACTOR X HUMAN\PROTEIN C\PROTEIN S HUMAN\PROTHROMBIN
     Indication: SURGERY
     Dosage: 1000 INTERNATIONAL UNIT
     Route: 042
     Dates: start: 20180816
  2. TAKECAB [Concomitant]
     Active Substance: VONOPRAZAN FUMURATE
     Indication: PROPHYLAXIS AGAINST GASTROINTESTINAL ULCER
     Dosage: UNK
     Route: 048
     Dates: start: 20180829
  3. MAGNESIUM OXIDE. [Concomitant]
     Active Substance: MAGNESIUM OXIDE
     Indication: POST PROCEDURAL CONSTIPATION
     Dosage: UNK
     Route: 048
     Dates: start: 20180825
  4. LASIX [Concomitant]
     Active Substance: FUROSEMIDE
     Indication: OLIGURIA
     Dosage: UNK
     Route: 048
     Dates: start: 20180902
  5. AMLODIPINE [AMLODIPINE BESILATE] [Concomitant]
     Active Substance: AMLODIPINE BESYLATE
     Indication: POSTOPERATIVE HYPERTENSION
     Dosage: UNK
     Route: 048
     Dates: start: 20180904
  6. ALDACTONE A [Concomitant]
     Active Substance: SPIRONOLACTONE
     Indication: OLIGURIA
     Dosage: UNK
     Route: 048
     Dates: start: 20180902
  7. DAIKENCHUTO [Concomitant]
     Active Substance: HERBALS
     Indication: POST PROCEDURAL CONSTIPATION
     Dosage: UNK
     Route: 048
     Dates: start: 20180825
  8. BERIPLEX P/N [Suspect]
     Active Substance: COAGULATION FACTOR IX HUMAN\COAGULATION FACTOR VII HUMAN\COAGULATION FACTOR X HUMAN\PROTEIN C\PROTEIN S HUMAN\PROTHROMBIN
     Indication: SURGERY
     Dosage: 1000 INTERNATIONAL UNIT
     Route: 042
     Dates: start: 20180816
  9. SAMSCA [Concomitant]
     Active Substance: TOLVAPTAN
     Indication: OLIGURIA
     Dosage: UNK
     Route: 048
     Dates: start: 20180822
  10. GASMOTIN [Concomitant]
     Active Substance: MOSAPRIDE CITRATE
     Indication: POST PROCEDURAL CONSTIPATION
     Dosage: UNK
     Route: 048
     Dates: start: 20180825

REACTIONS (1)
  - Cerebral infarction [Recovered/Resolved with Sequelae]

NARRATIVE: CASE EVENT DATE: 20180907
